FAERS Safety Report 5299940-3 (Version None)
Quarter: 2007Q2

REPORT INFORMATION
  Report Type: 
  Country: None (occurrence: None)
  Receive Date: 20070410
  Receipt Date: 20070402
  Transmission Date: 20071010
  Serious: Yes (Other)
  Sender: FDA-Public Use
  Company Number: D0052809A

PATIENT
  Age: 40 Year
  Sex: Male

DRUGS (3)
  1. PAXIL [Suspect]
     Dosage: 10 MG / PER DAY / ORAL
     Route: 048
     Dates: start: 20070328
  2. INTERFERON [Concomitant]
  3. PIPAMPERONE [Concomitant]

REACTIONS (1)
  - RHABDOMYOLYSIS [None]
